FAERS Safety Report 4672445-6 (Version None)
Quarter: 2005Q2

REPORT INFORMATION
  Report Type: 
  Country: None (occurrence: None)
  Receive Date: 20050520
  Receipt Date: 20050520
  Transmission Date: 20051028
  Serious: Yes (Hospitalization)
  Sender: FDA-Public Use
  Company Number: None

PATIENT
  Age: 23 Year
  Sex: Female
  Weight: 75 kg

DRUGS (1)
  1. TRAMADOL HCL [Suspect]
     Indication: BACK PAIN
     Dosage: 100 MG PO BID; PT TOOK 350 MG
     Route: 048
     Dates: start: 20050210, end: 20050302

REACTIONS (4)
  - CONVULSION [None]
  - DRUG ABUSER [None]
  - OVERDOSE [None]
  - VOMITING [None]
